FAERS Safety Report 7677507-7 (Version None)
Quarter: 2011Q3

REPORT INFORMATION
  Report Type: 
  Country: None (occurrence: None)
  Receive Date: 20110808
  Receipt Date: 20110727
  Transmission Date: 20111222
  Serious: Yes (Hospitalization)
  Sender: FDA-Public Use
  Company Number: DSJ-2011-15472

PATIENT
  Age: 9 Decade
  Sex: Female

DRUGS (2)
  1. OLMESARTAN MEDOXOMIL [Suspect]
     Indication: PRODUCT USED FOR UNKNOWN INDICATION
     Dosage: 20 MG,PER ORAL
     Route: 048
     Dates: end: 20110713
  2. GASTER (OMEPRAZOLE) (OMEPRAZOLE) [Concomitant]

REACTIONS (3)
  - MALAISE [None]
  - DECREASED APPETITE [None]
  - HYPONATRAEMIA [None]
